FAERS Safety Report 6358354-5 (Version None)
Quarter: 2009Q3

REPORT INFORMATION
  Report Type: 
  Country: None (occurrence: None)
  Receive Date: 20090916
  Receipt Date: 20090909
  Transmission Date: 20100115
  Serious: Yes (Other)
  Sender: FDA-Public Use
  Company Number: ES-B.I. PHARMACEUTICALS,INC./RIDGEFIELD-2009-ES-00153ES

PATIENT
  Age: 58 Year
  Sex: Female

DRUGS (6)
  1. MIRAPEX [Suspect]
     Indication: RESTLESS LEGS SYNDROME
     Dosage: 0.18 MG
     Route: 048
     Dates: start: 20090210, end: 20090210
  2. MOTIVAN [Suspect]
     Indication: DEPRESSION
     Dosage: 20 MG
     Route: 048
     Dates: start: 20090209
  3. ALPRAZOLAM [Suspect]
     Indication: ANXIETY
     Dosage: 0.5 MG
     Route: 048
     Dates: end: 20090207
  4. DIPOTASSIUM CHLORAZEPATE [Suspect]
     Indication: ANXIETY
     Dosage: 5 MG
     Route: 048
     Dates: start: 20090207
  5. COZAAR [Concomitant]
     Indication: HYPERTENSION
     Dosage: 50 MG
     Route: 048
     Dates: start: 20090207
  6. INDAPAMIDA MYLAN [Concomitant]
     Dosage: 2.5 MG
     Route: 048
     Dates: end: 20090207

REACTIONS (4)
  - DIPLOPIA [None]
  - DISCOMFORT [None]
  - FATIGUE [None]
  - SLEEP ATTACKS [None]
